FAERS Safety Report 8162531-0 (Version None)
Quarter: 2012Q1

REPORT INFORMATION
  Report Type: 
  Country: None (occurrence: None)
  Receive Date: 20120224
  Receipt Date: 20110531
  Transmission Date: 20120608
  Serious: No
  Sender: FDA-Public Use
  Company Number: US-PFIZER INC-K201100673

PATIENT
  Sex: Male

DRUGS (9)
  1. ALTACE [Suspect]
     Indication: HYPERTENSION
     Dosage: UNK
     Route: 048
     Dates: start: 20060101, end: 20060101
  2. KLONOPIN [Concomitant]
     Dosage: 0.5 MG, UNK
  3. MICARDIS [Suspect]
     Dosage: UNK
     Dates: end: 20060101
  4. SYNTHROID [Concomitant]
     Indication: THYROID DISORDER
     Dosage: 0.05 UNK, 1X/DAY
  5. LOPRESSOR [Suspect]
     Dosage: UNK
     Dates: end: 20060101
  6. HYTRIN [Concomitant]
     Dosage: 5 MG, UNK
  7. DIOVAN [Suspect]
     Dosage: UNK
     Dates: end: 20060101
  8. INDERAL [Suspect]
     Dosage: UNK
     Dates: end: 20060101
  9. RANITIDINE [Concomitant]
     Dosage: 30 MG, 2X/DAY

REACTIONS (6)
  - VISION BLURRED [None]
  - NERVOUSNESS [None]
  - GAIT DISTURBANCE [None]
  - HEADACHE [None]
  - TREMOR [None]
  - ASTHENIA [None]
